FAERS Safety Report 9963050 (Version 2)
Quarter: 2014Q1

REPORT INFORMATION
  Report Type: Report from Study
  Country: US (occurrence: US)
  Receive Date: 20140305
  Receipt Date: 20140305
  Transmission Date: 20141002
  Serious: Yes (Other)
  Sender: FDA-Public Use
  Company Number: US-SANOFI-AVENTIS-2013SA045889

PATIENT
  Age: 59 Year
  Sex: Female
  Weight: 90.71 kg

DRUGS (6)
  1. AUBAGIO [Suspect]
     Indication: MULTIPLE SCLEROSIS
     Route: 048
     Dates: start: 20130411
  2. HYDROCHLOROTHIAZIDE [Concomitant]
     Indication: CARDIAC DISORDER
  3. METOPROLOL [Concomitant]
  4. METFORMIN [Concomitant]
     Indication: DIABETES MELLITUS
  5. ASPIRIN ^BAYER^ [Concomitant]
     Indication: CARDIAC DISORDER
  6. VITAMIN D3 [Concomitant]

REACTIONS (2)
  - Spinal cord injury [Unknown]
  - Diarrhoea [Recovered/Resolved]
